FAERS Safety Report 20999565 (Version 6)
Quarter: 2022Q3

REPORT INFORMATION
  Report Type: Spontaneous
  Country: US (occurrence: US)
  Receive Date: 20220623
  Receipt Date: 20220818
  Transmission Date: 20221027
  Serious: Yes (Other)
  Sender: FDA-Public Use
  Company Number: US-PFIZER INC-PV202200007914

PATIENT
  Age: 67 Year
  Sex: Female

DRUGS (1)
  1. IBRANCE [Suspect]
     Active Substance: PALBOCICLIB
     Dosage: 100 MG

REACTIONS (17)
  - Cutaneous lupus erythematosus [Unknown]
  - Product dose omission issue [Unknown]
  - Blood test abnormal [Unknown]
  - Neutrophil count decreased [Unknown]
  - Fatigue [Unknown]
  - Gingival bleeding [Unknown]
  - Epistaxis [Unknown]
  - Platelet count decreased [Unknown]
  - Nausea [Unknown]
  - Mood swings [Unknown]
  - White blood cell count decreased [Unknown]
  - Rash pruritic [Unknown]
  - Arthralgia [Unknown]
  - Full blood count decreased [Unknown]
  - Diarrhoea [Unknown]
  - Fatigue [Unknown]
  - Gastric disorder [Unknown]
